FAERS Safety Report 11166478 (Version 1)
Quarter: 2015Q2

REPORT INFORMATION
  Report Type: Spontaneous
  Country: US (occurrence: US)
  Receive Date: 20150605
  Receipt Date: 20150605
  Transmission Date: 20150821
  Serious: No
  Sender: FDA-Public Use
  Company Number: US-JNJFOC-20150505240

PATIENT
  Sex: Male
  Weight: 129.73 kg

DRUGS (2)
  1. PIPERAZINE [Concomitant]
     Active Substance: PIPERAZINE
     Indication: PRODUCT USED FOR UNKNOWN INDICATION
     Route: 065
  2. RISPERDAL CONSTA [Suspect]
     Active Substance: RISPERIDONE
     Indication: SCHIZOPHRENIA, PARANOID TYPE
     Route: 030
     Dates: start: 2010

REACTIONS (2)
  - Drug dose omission [Unknown]
  - Needle issue [Unknown]
